FAERS Safety Report 12305351 (Version 1)
Quarter: 2016Q2

REPORT INFORMATION
  Report Type: Spontaneous
  Country: US (occurrence: US)
  Receive Date: 20160426
  Receipt Date: 20160426
  Transmission Date: 20160815
  Serious: Yes (Other)
  Sender: FDA-Public Use
  Company Number: US-SA-2016SA077610

PATIENT
  Age: 83 Year
  Sex: Male

DRUGS (2)
  1. PEROXIDE [Concomitant]
     Active Substance: HYDROGEN PEROXIDE
     Route: 065
  2. ALLEGRA ALLERGY [Suspect]
     Active Substance: FEXOFENADINE HYDROCHLORIDE
     Indication: HYPERSENSITIVITY
     Dosage: AFTER 1 TABLET PATIENT HAD EVENTS AND RETURNED PRODUCT.
     Route: 065
     Dates: start: 20160412, end: 20160412

REACTIONS (4)
  - Deafness [Unknown]
  - Erythema [Unknown]
  - Ear discomfort [Unknown]
  - Ear swelling [Unknown]

NARRATIVE: CASE EVENT DATE: 20160412
